FAERS Safety Report 8756721 (Version 1)
Quarter: 2012Q4

REPORT INFORMATION
  Report Type: 
  Country: US (occurrence: US)
  Receive Date: 20120828
  Receipt Date: 20120828
  Transmission Date: 20130627
  Serious: Yes (Hospitalization)
  Sender: FDA-Public Use
  Company Number: PHEH2012US016734

PATIENT
  Age: 50 Year
  Sex: Male
  Weight: 113 kg

DRUGS (15)
  1. TASIGNA [Suspect]
     Dosage: 150 mg
     Route: 048
  2. LIPITOR [Concomitant]
     Dosage: 10 mg
     Route: 048
  3. METOPROLOL [Concomitant]
     Dosage: 100 mg
     Route: 048
  4. METFORMIN [Concomitant]
     Dosage: 500 mg
     Route: 048
  5. HYDROCHLOROTHIAZIDE [Concomitant]
     Dosage: 12.5 mg
     Route: 048
  6. PRILOSEC [Concomitant]
     Dosage: 20 mg
     Route: 048
  7. BUTALBITAL, ACETAMINOPHEN, CAFFEINE [Concomitant]
  8. ZANAFLEX [Concomitant]
     Dosage: 2 mg
     Route: 048
  9. IRON [Concomitant]
     Dosage: 18 mg
     Route: 048
  10. IMODIUM [Concomitant]
     Route: 048
  11. POTASSIUM [Concomitant]
     Route: 048
  12. PENTASA [Concomitant]
     Dosage: 250 mg
     Route: 048
  13. MAGNESIUM [Concomitant]
     Dosage: 300 mg
     Route: 048
  14. ZEGERID [Concomitant]
     Route: 048
  15. REMICADE [Concomitant]
     Dosage: 100 mg

REACTIONS (4)
  - Loss of consciousness [Recovered/Resolved]
  - Dizziness [Recovered/Resolved]
  - Headache [Recovered/Resolved]
  - Diarrhoea [Unknown]
